FAERS Safety Report 6484516-2 (Version None)
Quarter: 2009Q4

REPORT INFORMATION
  Report Type: 
  Country: None (occurrence: None)
  Receive Date: 20091209
  Receipt Date: 20091204
  Transmission Date: 20100525
  Serious: Yes (Death, Other)
  Sender: FDA-Public Use
  Company Number: PHHY2009MX13801

PATIENT
  Sex: Female

DRUGS (1)
  1. DIOVAN [Suspect]
     Indication: HYPERTENSION
     Dosage: 160 MG, BID
     Dates: start: 20010101, end: 20090801

REACTIONS (10)
  - DECREASED APPETITE [None]
  - DEHYDRATION [None]
  - GINGIVAL CANCER [None]
  - GINGIVAL ERYTHEMA [None]
  - GINGIVAL INFECTION [None]
  - GINGIVAL OPERATION [None]
  - GINGIVITIS [None]
  - HYPERSENSITIVITY [None]
  - MALNUTRITION [None]
  - PROCEDURAL COMPLICATION [None]
